FAERS Safety Report 14413324 (Version 1)
Quarter: 2018Q1

REPORT INFORMATION
  Report Type: Report from Study
  Country: None (occurrence: US)
  Receive Date: 20180119
  Receipt Date: 20180119
  Transmission Date: 20180509
  Serious: Yes (Other)
  Sender: FDA-Public Use
  Company Number: US-ABBVIE-18K-163-2227323-00

PATIENT
  Sex: Female

DRUGS (1)
  1. HUMIRA [Suspect]
     Active Substance: ADALIMUMAB
     Indication: PRODUCT USED FOR UNKNOWN INDICATION
     Route: 058

REACTIONS (5)
  - Carpal tunnel syndrome [Unknown]
  - Influenza [Unknown]
  - Urinary tract infection [Unknown]
  - Gastroenteritis viral [Unknown]
  - Tendon operation [Unknown]

NARRATIVE: CASE EVENT DATE: 2017
